FAERS Safety Report 15101411 (Version 1)
Quarter: 2018Q3

REPORT INFORMATION
  Report Type: Spontaneous
  Country: GB (occurrence: GB)
  Receive Date: 20180703
  Receipt Date: 20180703
  Transmission Date: 20181010
  Serious: Yes (Hospitalization)
  Sender: FDA-Public Use
  Company Number: GB-AUROBINDO-AUR-APL-2018-033388

PATIENT
  Age: 23 Year
  Sex: Male
  Weight: 145 kg

DRUGS (1)
  1. METFORMIN [Suspect]
     Active Substance: METFORMIN HYDROCHLORIDE
     Indication: DIABETES MELLITUS
     Dosage: UNK
     Route: 048
     Dates: start: 20130901, end: 20140601

REACTIONS (5)
  - Vomiting [Unknown]
  - Dehydration [Unknown]
  - Non-alcoholic fatty liver [Recovered/Resolved]
  - Malnutrition [Unknown]
  - Nausea [Unknown]

NARRATIVE: CASE EVENT DATE: 20131001
